FAERS Safety Report 10704716 (Version 1)
Quarter: 2015Q1

REPORT INFORMATION
  Report Type: Spontaneous
  Country: US (occurrence: None)
  Receive Date: 20150109
  Receipt Date: 20150109
  Transmission Date: 20150721
  Serious: Yes (Hospitalization)
  Sender: FDA-Public Use
  Company Number: None

PATIENT
  Age: 73 Year
  Sex: Male
  Weight: 81.7 kg

DRUGS (4)
  1. CLOPIDOGREL [Suspect]
     Active Substance: CLOPIDOGREL BISULFATE
     Indication: SURGERY
     Dosage: 75 MG, AM
     Route: 048
     Dates: start: 20100403, end: 20141205
  2. ASPIRIN. [Suspect]
     Active Substance: ASPIRIN
     Indication: CARDIOVASCULAR DISORDER
     Dosage: 81 MG, AM
     Route: 048
     Dates: start: 20111206, end: 20141205
  3. ASPIRIN. [Suspect]
     Active Substance: ASPIRIN
     Indication: SURGERY
     Dosage: 81 MG, AM
     Route: 048
     Dates: start: 20111206, end: 20141205
  4. CLOPIDOGREL [Suspect]
     Active Substance: CLOPIDOGREL BISULFATE
     Indication: CARDIOVASCULAR DISORDER
     Dosage: 75 MG, AM
     Route: 048
     Dates: start: 20100403, end: 20141205

REACTIONS (3)
  - Haemorrhoids [None]
  - Diverticulum [None]
  - Rectal haemorrhage [None]

NARRATIVE: CASE EVENT DATE: 20141205
